FAERS Safety Report 10350841 (Version 1)
Quarter: 2014Q3

REPORT INFORMATION
  Report Type: Spontaneous
  Country: US (occurrence: None)
  Receive Date: 20140728
  Receipt Date: 20140728
  Transmission Date: 20150326
  Serious: No
  Sender: FDA-Public Use
  Company Number: None

PATIENT
  Age: 74 Year
  Sex: Male
  Weight: 75.75 kg

DRUGS (2)
  1. TESTOSTERONE. [Suspect]
     Active Substance: TESTOSTERONE
     Indication: BLOOD TESTOSTERONE DECREASED
     Dosage: 2 PUMPS DAILY ONCE DAILY APPLIED TO A SURFACE USUALLY THE SKIN
     Route: 058
     Dates: start: 20140528, end: 20140716
  2. TESTOSTERONE. [Suspect]
     Active Substance: TESTOSTERONE
     Indication: BLOOD TESTOSTERONE DECREASED
     Dosage: 1 PATCH AT BEDTIME APPLIED AS MEDICATED PATCH TO SKIN
     Route: 061
     Dates: start: 20140414, end: 20140524

REACTIONS (6)
  - Rash [None]
  - Fall [None]
  - Injury [None]
  - Sleep terror [None]
  - Nightmare [None]
  - Screaming [None]

NARRATIVE: CASE EVENT DATE: 20140525
